FAERS Safety Report 4379923-8 (Version None)
Quarter: 2004Q2

REPORT INFORMATION
  Report Type: 
  Country: None (occurrence: None)
  Receive Date: 20040614
  Receipt Date: 20040607
  Transmission Date: 20050107
  Serious: Yes (Hospitalization)
  Sender: FDA-Public Use
  Company Number: 2004-06-0293

PATIENT
  Age: 45 Year
  Sex: Male
  Weight: 70 kg

DRUGS (3)
  1. REBETOL [Suspect]
     Indication: HEPATITIS C
     Dosage: 600 MG QD ORAL
     Route: 048
     Dates: start: 20030603, end: 20040322
  2. VIDEX [Suspect]
     Indication: HIV INFECTION
     Dosage: ORAL
     Route: 048
     Dates: end: 20040322
  3. VIRAFERONPEG [Suspect]
     Indication: HEPATITIS C
     Dosage: 90 UG QW SUBCUTANEOUS
     Route: 058
     Dates: start: 20020603, end: 20040511

REACTIONS (6)
  - ABDOMINAL PAIN [None]
  - ALANINE AMINOTRANSFERASE INCREASED [None]
  - BLOOD AMYLASE INCREASED [None]
  - DRUG INTERACTION [None]
  - LIPASE INCREASED [None]
  - MITOCHONDRIAL CYTOPATHY [None]
